FAERS Safety Report 23070524 (Version 1)
Quarter: 2023Q4

REPORT INFORMATION
  Report Type: Spontaneous
  Country: CA (occurrence: CA)
  Receive Date: 20231016
  Receipt Date: 20231016
  Transmission Date: 20240110
  Serious: Yes (Other)
  Sender: FDA-Public Use
  Company Number: CA-PFIZER INC-202300323344

PATIENT
  Age: 68 Year
  Sex: Female

DRUGS (1)
  1. DEPO-MEDROL [Suspect]
     Active Substance: METHYLPREDNISOLONE ACETATE
     Indication: Osteoarthritis
     Dosage: 0.5 ML, SINGLE
     Route: 030

REACTIONS (2)
  - Hypoaesthesia [Recovered/Resolved]
  - Erythema [Recovered/Resolved]
